FAERS Safety Report 9077778 (Version 1)
Quarter: 2013Q1

REPORT INFORMATION
  Report Type: Report from Study
  Country: US (occurrence: US)
  Receive Date: 20130130
  Receipt Date: 20130130
  Transmission Date: 20140127
  Serious: No
  Sender: FDA-Public Use
  Company Number: US-ABBOTT-12P-163-0956879-00

PATIENT
  Age: 38 None
  Sex: Female

DRUGS (3)
  1. HUMIRA 40 MG/0.8 ML PEN [Suspect]
     Indication: PSORIASIS
     Dates: start: 201204
  2. UNKNOWN BIRTH CONTROL [Concomitant]
     Indication: CONTRACEPTION
     Dosage: DAILY
     Route: 048
  3. ZOLOFT [Concomitant]
     Indication: PRODUCT USED FOR UNKNOWN INDICATION

REACTIONS (8)
  - Device malfunction [Unknown]
  - Device malfunction [Unknown]
  - Drug dose omission [Unknown]
  - Injection site pain [Recovered/Resolved]
  - Injection site haemorrhage [Unknown]
  - Injection site haemorrhage [Unknown]
  - Injection site haemorrhage [Unknown]
  - Injection site pain [Unknown]
